FAERS Safety Report 5542349-5 (Version None)
Quarter: 2007Q4

REPORT INFORMATION
  Report Type: 
  Country: None (occurrence: None)
  Receive Date: 20071129
  Receipt Date: 20070424
  Transmission Date: 20080405
  Serious: Yes (Other)
  Sender: FDA-Public Use
  Company Number: US200702001009

PATIENT
  Age: 47 Year
  Sex: Male
  Weight: 85.3 kg

DRUGS (3)
  1. ZYPREXA [Suspect]
     Indication: SCHIZOPHRENIA
     Dosage: 10 MG, 50 MG
     Dates: start: 20000601, end: 20050301
  2. CHLORPROMAZINE [Concomitant]
  3. PROZAC [Concomitant]

REACTIONS (7)
  - DIABETES MELLITUS [None]
  - DIABETIC COMA [None]
  - DIABETIC KETOACIDOSIS [None]
  - HYPERGLYCAEMIA [None]
  - OVERDOSE [None]
  - PANCREATITIS [None]
  - VISION BLURRED [None]
